APPROVED DRUG PRODUCT: NEOMYCIN AND POLYMYXIN B SULFATE
Active Ingredient: NEOMYCIN SULFATE; POLYMYXIN B SULFATE
Strength: EQ 40MG BASE/ML;200,000 UNITS/ML
Dosage Form/Route: SOLUTION;IRRIGATION
Application: A065108 | Product #001
Applicant: XGEN PHARMACEUTICALS DJB INC
Approved: Jan 31, 2006 | RLD: No | RS: Yes | Type: RX